FAERS Safety Report 5669242-1 (Version None)
Quarter: 2008Q1

REPORT INFORMATION
  Report Type: 
  Country: None (occurrence: None)
  Receive Date: 20080317
  Receipt Date: 20080312
  Transmission Date: 20080703
  Serious: Yes (Death, Hospitalization)
  Sender: FDA-Public Use
  Company Number: US-ROCHE-552808

PATIENT
  Age: 71 Year
  Sex: Male

DRUGS (3)
  1. CAPECITABINE [Suspect]
     Indication: GASTRIC CANCER
     Dosage: THERAPY DURATION REPORTED AS 3 WEEKS 2 DAYS
     Route: 048
     Dates: start: 20080207, end: 20080229
  2. DOCETAXEL [Suspect]
     Indication: GASTRIC CANCER
     Route: 042
     Dates: start: 20080227, end: 20080227
  3. OXALIPLATIN [Suspect]
     Indication: GASTRIC CANCER
     Route: 042
     Dates: start: 20080227, end: 20080227

REACTIONS (4)
  - DIARRHOEA [None]
  - ENTEROCOLITIS [None]
  - NAUSEA [None]
  - VOMITING [None]
